FAERS Safety Report 7552015-2 (Version None)
Quarter: 2011Q2

REPORT INFORMATION
  Report Type: 
  Country: None (occurrence: None)
  Receive Date: 20110616
  Receipt Date: 20110607
  Transmission Date: 20111010
  Serious: Yes (Other)
  Sender: FDA-Public Use
  Company Number: GB-TEVA-286476ISR

PATIENT
  Age: 49 Year
  Sex: Female

DRUGS (1)
  1. TRIMETHOPRIM [Suspect]
     Indication: URINARY TRACT INFECTION
     Dosage: 200 MILLIGRAM;
     Dates: start: 20110426, end: 20110429

REACTIONS (2)
  - PSYCHOMOTOR HYPERACTIVITY [None]
  - AGITATION [None]
